FAERS Safety Report 10561152 (Version 2)
Quarter: 2014Q4

REPORT INFORMATION
  Report Type: Report from Study
  Country: CN (occurrence: CN)
  Receive Date: 20141103
  Receipt Date: 20141103
  Transmission Date: 20150529
  Serious: Yes (Hospitalization, Other)
  Sender: FDA-Public Use
  Company Number: CN-BAYER-2014-125084

PATIENT
  Age: 55 Year
  Sex: Male

DRUGS (5)
  1. PROGRAF [Concomitant]
     Active Substance: TACROLIMUS\TACROLIMUS ANHYDROUS
     Indication: TRANSPLANT REJECTION
  2. CELLCEPT [Concomitant]
     Active Substance: MYCOPHENOLATE MOFETIL\MYCOPHENOLATE MOFETIL HYDROCHLORIDE
     Indication: TRANSPLANT REJECTION
  3. NEXAVAR [Suspect]
     Active Substance: SORAFENIB
     Indication: HEPATOCELLULAR CARCINOMA
     Dosage: 400 MG, BID
     Route: 048
     Dates: start: 20140915
  4. GRANULOCYTE COLONY STIMULATING FACTOR [Concomitant]
     Active Substance: GRANULOCYTE COLONY-STIMULATING FACTOR NOS
  5. NEXAVAR [Suspect]
     Active Substance: SORAFENIB
     Indication: HEPATOCELLULAR CARCINOMA
     Dosage: 200 MG, BID
     Dates: start: 20140615, end: 20140914

REACTIONS (18)
  - Abdominal pain [None]
  - Diarrhoea [Recovered/Resolved]
  - Aspartate aminotransferase increased [None]
  - Transplant rejection [None]
  - Alopecia [None]
  - Transaminases increased [Recovered/Resolved]
  - Myalgia [None]
  - Hypertension [None]
  - White blood cell count decreased [None]
  - Jaundice [Not Recovered/Not Resolved]
  - Myalgia [None]
  - Alanine aminotransferase increased [None]
  - Alanine aminotransferase increased [Recovered/Resolved]
  - Rash [None]
  - Splenomegaly [Not Recovered/Not Resolved]
  - Aspartate aminotransferase increased [Recovered/Resolved]
  - Asthenia [None]
  - Platelet count decreased [None]

NARRATIVE: CASE EVENT DATE: 20140819
